FAERS Safety Report 6141832-1 (Version None)
Quarter: 2009Q2

REPORT INFORMATION
  Report Type: 
  Country: None (occurrence: None)
  Receive Date: 20090402
  Receipt Date: 20081210
  Transmission Date: 20091009
  Serious: Yes (Hospitalization)
  Sender: FDA-Public Use
  Company Number: DE-PFIZER INC-2008151544

PATIENT

DRUGS (22)
  1. METFORMIN HCL [Suspect]
     Indication: DIABETES MELLITUS
     Dosage: UNK
     Route: 048
     Dates: start: 20050525, end: 20051016
  2. PLANUM [Suspect]
     Indication: SLEEP DISORDER
     Dosage: UNK
     Route: 048
     Dates: start: 20050928
  3. CETIRIZINE HCL [Suspect]
     Indication: PRURITUS
     Dosage: 10 MG, 1X/DAY
     Route: 048
     Dates: start: 20051010, end: 20051010
  4. PHENYTOIN [Suspect]
     Indication: CONVULSION PROPHYLAXIS
     Dosage: UNK
     Route: 048
     Dates: start: 20050918
  5. COTRIM [Suspect]
     Dosage: UNK
     Route: 048
     Dates: start: 20051016, end: 20051019
  6. LACTULOSE [Suspect]
     Indication: CONSTIPATION
     Dosage: 10 ML, 1X/DAY
     Route: 048
     Dates: start: 20050918, end: 20051006
  7. FOSAMAX [Suspect]
     Indication: OSTEOPOROSIS
     Dosage: UNK
     Route: 048
     Dates: start: 20050826, end: 20051005
  8. ASPIRIN [Suspect]
     Indication: THROMBOSIS PROPHYLAXIS
     Dosage: 100 MG, 1X/DAY
     Dates: start: 20050918, end: 20051018
  9. CARMEN [Suspect]
     Indication: HYPERTENSION
     Dosage: 10 MG, 2X/DAY
     Route: 048
     Dates: start: 20050525
  10. PANTOZOL [Suspect]
     Indication: PROPHYLAXIS AGAINST GASTROINTESTINAL ULCER
     Dosage: 40 MG, 1X/DAY
     Route: 048
     Dates: start: 20050918, end: 20050927
  11. PANTOZOL [Suspect]
     Dosage: 1/2 OF 40 MG, 1X/DAY
     Route: 048
     Dates: start: 20051006, end: 20051010
  12. IDEOS [Suspect]
     Indication: OSTEOPOROSIS
     Dosage: UNK
     Route: 048
     Dates: start: 20050826
  13. EMBOLEX [Suspect]
     Indication: THROMBOSIS PROPHYLAXIS
     Dosage: 0.5 MG, 1X/DAY
     Route: 058
     Dates: start: 20050928, end: 20051010
  14. RIVOTRIL [Suspect]
     Indication: RESTLESSNESS
     Dosage: 0.5MG
     Route: 048
     Dates: start: 20051004, end: 20051007
  15. HALDOL [Suspect]
     Indication: RESTLESSNESS
     Dosage: 10 GTT, 3X/DAY
     Route: 048
     Dates: start: 20051006, end: 20051007
  16. NULYTELY [Suspect]
     Indication: CONSTIPATION
     Dosage: UNK
     Route: 048
     Dates: start: 20051006, end: 20051022
  17. PREDNISOLONE [Suspect]
     Indication: RASH
     Dosage: UNK
     Route: 061
     Dates: start: 20051008, end: 20051012
  18. PASPERTIN [Suspect]
     Indication: NAUSEA
     Dosage: 15 GTT, 3X/DAY
     Route: 048
     Dates: start: 20051014
  19. NEXIUM [Suspect]
     Indication: PROPHYLAXIS AGAINST GASTROINTESTINAL ULCER
     Dosage: 40 MG, 1X/DAY
     Route: 048
     Dates: start: 20051018, end: 20051020
  20. NOVALGIN [Concomitant]
     Indication: PAIN
     Dosage: 30 GTT, 4X/DAY
     Route: 048
     Dates: start: 20050826, end: 20050927
  21. VOLTAREN [Concomitant]
     Indication: PAIN
     Dosage: UNK
     Route: 048
     Dates: start: 20050826, end: 20050927
  22. DELIX PLUS [Concomitant]
     Indication: HYPERTENSION
     Dosage: 1/2 OF 5MG
     Route: 048
     Dates: start: 20050918, end: 20050927

REACTIONS (4)
  - DRY SKIN [None]
  - PRURITUS [None]
  - RASH [None]
  - STEVENS-JOHNSON SYNDROME [None]
